FAERS Safety Report 13269486 (Version 8)
Quarter: 2018Q3

REPORT INFORMATION
  Report Type: Report from Study
  Country: None (occurrence: AT)
  Receive Date: 20170224
  Receipt Date: 20180822
  Transmission Date: 20181010
  Serious: Yes (Hospitalization)
  Sender: FDA-Public Use
  Company Number: AT-ABBVIE-16P-009-1761857-00

PATIENT
  Age: 68 Year
  Sex: Male

DRUGS (67)
  1. VENETOCLAX. [Suspect]
     Active Substance: VENETOCLAX
     Dosage: MOST RECENT DOSE PRIOR TO SECOND FEBRILE NEUTROPENIA AND INFECTION WAS 23OCT16
     Route: 048
  2. CYCLOPHOSPHAMIDE. [Suspect]
     Active Substance: CYCLOPHOSPHAMIDE
     Dosage: MOST RECENT DOSE PRIOR TO COMMON COLD, THIRD EPISODE OF FN (1500 MG) WAS 28NOV16
     Route: 042
  3. VINCRISTINE [Suspect]
     Active Substance: VINCRISTINE
     Indication: B-CELL LYMPHOMA
     Dosage: MOST RECENT DOSE PRIOR TO FIRST EPISODE OF SYNCOPE, FN, INFECTION (2MG) WAS 14OCT16
     Route: 042
     Dates: start: 20160902
  4. VINCRISTINE [Suspect]
     Active Substance: VINCRISTINE
     Dosage: MOST RECENT DOSE PRIOR TO  INFLUENZA INFECTION (1MG) WAS 20DEC16
     Route: 042
  5. RATIOGRASTIM [Concomitant]
     Active Substance: FILGRASTIM
     Dates: start: 20161018, end: 20161020
  6. RATIOGRASTIM [Concomitant]
     Active Substance: FILGRASTIM
     Dates: start: 20161116, end: 20161121
  7. LOVENOX [Concomitant]
     Active Substance: ENOXAPARIN SODIUM
     Indication: THROMBOSIS PROPHYLAXIS
     Dates: start: 20160902, end: 20160905
  8. LOVENOX [Concomitant]
     Active Substance: ENOXAPARIN SODIUM
     Dates: start: 20160923, end: 20160924
  9. ZARZIO [Concomitant]
     Active Substance: FILGRASTIM
     Indication: NEUTROPENIA
     Dates: start: 20161228, end: 20161231
  10. VENETOCLAX. [Suspect]
     Active Substance: VENETOCLAX
     Dosage: MOST RECENT DOSE PRIOR TO SECOND EPISODE OF SYNCOPE WAS 16NOV16
     Route: 048
  11. RITUXIMAB. [Suspect]
     Active Substance: RITUXIMAB
     Indication: B-CELL LYMPHOMA
     Dosage: MOST RECENT DOSE PRIOR TO FIRST EPISODE OF SYNCOPE AND FN, INFECTION (740MG) WAS 14OCT16
     Route: 042
     Dates: start: 20160902
  12. RITUXIMAB. [Suspect]
     Active Substance: RITUXIMAB
     Dosage: MOST RECENT DOSE PRIOR TO SECOND EPISODE OF SYNCOPE, FN (740MG) WAS 07NOV16
     Route: 042
  13. DOXORUBICIN [Suspect]
     Active Substance: DOXORUBICIN
     Dosage: MOST RECENT DOSE PRIOR TO INFLUENZA INFECTION (100MG) 20DEC16
     Route: 042
  14. PREDNISONE. [Suspect]
     Active Substance: PREDNISONE
     Dosage: MOST RECENT DOSE PRIOR TO FIRST EPISODE OF SYNCOPE, FN, INFECTION WAS 18OCT16
     Route: 048
  15. PREDNISONE. [Suspect]
     Active Substance: PREDNISONE
     Dosage: MOST RECENT DOSE PRIOR TO COMMON COLD AND THIRD FN WAS 02DEC16
     Route: 048
  16. METOHEXAL [Concomitant]
     Active Substance: METOPROLOL SUCCINATE
     Indication: CARDIAC FAILURE
  17. RATIOGRASTIM [Concomitant]
     Active Substance: FILGRASTIM
     Indication: PRODUCT USED FOR UNKNOWN INDICATION
     Dates: start: 20160906, end: 20160910
  18. RATIOGRASTIM [Concomitant]
     Active Substance: FILGRASTIM
     Dates: start: 20161202, end: 20161206
  19. EMEND [Concomitant]
     Active Substance: APREPITANT
     Indication: PROPHYLAXIS OF NAUSEA AND VOMITING
     Dates: start: 20161014
  20. ACEMIN [Concomitant]
     Active Substance: LISINOPRIL
     Indication: HYPERTENSION
     Dates: start: 201610
  21. BURONIL [Concomitant]
     Active Substance: MELPERONE HYDROCHLORIDE
     Indication: PRODUCT USED FOR UNKNOWN INDICATION
     Dates: start: 20161014, end: 20161014
  22. TEMESTA [Concomitant]
     Indication: PRODUCT USED FOR UNKNOWN INDICATION
     Dates: start: 20161026, end: 20161027
  23. PASSEDAN [Concomitant]
     Indication: ANXIETY
     Dates: start: 20161023, end: 20161024
  24. KALIORAL [Concomitant]
     Indication: HYPOKALAEMIA
     Route: 042
     Dates: end: 20161231
  25. KALIORAL [Concomitant]
     Route: 042
     Dates: start: 20161228, end: 20161229
  26. VENETOCLAX. [Suspect]
     Active Substance: VENETOCLAX
     Dosage: MOST RECENT DOSE PRIOR TO COMMON COLD, THIRD FN (400MG) WAS 7DEC16
     Route: 048
  27. DOXORUBICIN [Suspect]
     Active Substance: DOXORUBICIN
     Dosage: MOST RECENT DOSE PRIOR TO COMMON COLD, THIRD EPISODE FN (50MG) 28NOV16
     Route: 042
  28. PREDNISONE. [Suspect]
     Active Substance: PREDNISONE
     Dosage: MOST RECENT DOSE PRIOR TO SECOND EPISODE OF SYNCOPE AND FN WAS 11NOV16
     Route: 048
  29. MAGNESIUM SULFATE. [Concomitant]
     Active Substance: MAGNESIUM SULFATE
     Indication: PRODUCT USED FOR UNKNOWN INDICATION
     Dates: start: 20161027, end: 20161027
  30. DOXORUBICIN [Suspect]
     Active Substance: DOXORUBICIN
     Dosage: MOST RECENT DOSE PRIOR TO SECOND EPISODE OF SYNCOPE, FN (100MG) WAS 07NOV16
     Route: 042
  31. VINCRISTINE [Suspect]
     Active Substance: VINCRISTINE
     Dosage: MOST RECENT DOSE PRIOR TO COMMON COLD AND THIRD EPISODE FN (1MG) WAS 28NOV16
     Route: 042
  32. PREDNISONE. [Suspect]
     Active Substance: PREDNISONE
     Indication: B-CELL LYMPHOMA
     Dosage: 100MG DAILY ON DAYS 1?5 OF EACH CYCLE
     Route: 048
     Dates: start: 20160902
  33. SIMVASTATIN. [Concomitant]
     Active Substance: SIMVASTATIN
     Indication: HYPERLIPIDAEMIA
  34. LYRICA [Concomitant]
     Active Substance: PREGABALIN
     Indication: ANXIETY DISORDER
     Dates: start: 20161020
  35. KCL ZYMA [Concomitant]
     Indication: PRODUCT USED FOR UNKNOWN INDICATION
     Dates: start: 201609
  36. AUGMENTIN [Concomitant]
     Active Substance: AMOXICILLIN\CLAVULANATE POTASSIUM
     Indication: INFECTION
     Dates: start: 20161210, end: 20161214
  37. ACEMIN [Concomitant]
     Active Substance: LISINOPRIL
     Indication: HYPERTENSION
     Dates: start: 201610
  38. DOXORUBICIN [Suspect]
     Active Substance: DOXORUBICIN
     Indication: B-CELL LYMPHOMA
     Dosage: MOST RECENT DOSE PRIOR TO FIRST EPISODE OF SYNCOPE, FN, INFECTION(100MG) WAS 14OCT16
     Route: 042
     Dates: start: 20160902
  39. PREDNISONE. [Suspect]
     Active Substance: PREDNISONE
     Dosage: MOST RECENT DOSE 24 DEC 16
     Route: 048
  40. AMLODIPIN [Concomitant]
     Active Substance: AMLODIPINE BESYLATE
     Indication: HYPERTENSION
  41. RATIOGRASTIM [Concomitant]
     Active Substance: FILGRASTIM
     Dates: start: 20161224, end: 20161227
  42. MOLAXOLE [Concomitant]
     Active Substance: POLYETHYLENE GLYCOL 3350\POTASSIUM CHLORIDE\SODIUM BICARBONATE\SODIUM CHLORIDE
     Indication: CONSTIPATION
  43. TROMCARDIN [Concomitant]
     Active Substance: MAGNESIUM ASPARTATE\POTASSIUM ASPARTATE
     Indication: HYPOKALAEMIA
     Route: 042
     Dates: start: 20161227, end: 20161227
  44. CYCLOPHOSPHAMIDE. [Suspect]
     Active Substance: CYCLOPHOSPHAMIDE
     Indication: B-CELL LYMPHOMA
     Dosage: MOST RECENT DOSE PRIOR TO FIRST EPISODE OF SYNCOPE AND FN, INFECTION (1500 MG) WAS 14OCT16
     Route: 042
     Dates: start: 20160902
  45. CYCLOPHOSPHAMIDE. [Suspect]
     Active Substance: CYCLOPHOSPHAMIDE
     Dosage: MOST RECENT DOSE PRIOR TO SECOND EPISODE OF SYNCOPE AND FN (1500 MG) WAS07NOV16
     Route: 042
  46. VINCRISTINE [Suspect]
     Active Substance: VINCRISTINE
     Dosage: MOST RECENT DOSE PRIOR TO SECOND EPISODE OF SYNCOPE, FN (1MG) WAS 07NOV16
     Route: 042
  47. CITALOPRAM [Concomitant]
     Active Substance: CITALOPRAM HYDROBROMIDE
     Indication: DEPRESSION
  48. ALLOPURINOL. [Concomitant]
     Active Substance: ALLOPURINOL
     Indication: PROPHYLAXIS
     Dates: start: 20160902
  49. TAVANIC [Concomitant]
     Active Substance: LEVOFLOXACIN
     Indication: INFECTION PROPHYLAXIS
     Dates: start: 20160906, end: 20170102
  50. ZOFRAN [Concomitant]
     Active Substance: ONDANSETRON HYDROCHLORIDE
     Indication: PROPHYLAXIS OF NAUSEA AND VOMITING
     Route: 048
     Dates: start: 20160903
  51. NEUROMULTIVIT [Concomitant]
     Active Substance: CYANOCOBALAMIN\PYRIDOXINE\THIAMINE
     Indication: POLYNEUROPATHY
     Dates: start: 201611
  52. CLAVAMOX [Concomitant]
     Active Substance: AMOXICILLIN\CLAVULANATE POTASSIUM
     Indication: PRODUCT USED FOR UNKNOWN INDICATION
     Dates: start: 20161103, end: 20161110
  53. NEUROBION FORTE [Concomitant]
     Active Substance: CYANOCOBALAMIN\PYRIDOXINE HYDROCHLORIDE\THIAMINE DISULFIDE
     Indication: POLYNEUROPATHY
     Dates: start: 20161230
  54. PASPERTIN [Concomitant]
     Indication: NAUSEA
     Route: 042
     Dates: start: 20161225, end: 20161225
  55. VENETOCLAX. [Suspect]
     Active Substance: VENETOCLAX
     Indication: B-CELL LYMPHOMA
     Dosage: MOST RECENT DOSE PRIOR TO FIRST EPISODE OF SYNCOPE WAS 20OCT16
     Route: 048
     Dates: start: 20160905
  56. CYCLOPHOSPHAMIDE. [Suspect]
     Active Substance: CYCLOPHOSPHAMIDE
     Dosage: MOST RECENT DOSE PRIOR TO INFLUENZA INFECTION (1500 MG) WAS 20DEC16
     Route: 042
  57. THROMBO ASS (ASPRIN) [Concomitant]
     Indication: PROPHYLAXIS
  58. PANTOLOC [Concomitant]
     Active Substance: PANTOPRAZOLE SODIUM
     Indication: PROPHYLAXIS
  59. OLEOVIT D3 [Concomitant]
     Active Substance: CHOLECALCIFEROL
     Indication: VITAMIN SUPPLEMENTATION
     Dates: start: 20160902
  60. OPTIFIBRE(DIETARY FIBER) [Concomitant]
     Indication: CONSTIPATION
     Dates: start: 201609
  61. RATIOGRASTIM [Concomitant]
     Active Substance: FILGRASTIM
     Dates: start: 20160927, end: 20161005
  62. NEUDOLPASSE [Concomitant]
     Indication: PAIN
     Dates: start: 20160902, end: 20160902
  63. ELO?MEL [Concomitant]
     Active Substance: CALCIUM CHLORIDE\MAGNESIUM CHLORIDE\POTASSIUM CHLORIDE\SODIUM ACETATE\SODIUM CHLORIDE
     Indication: PRODUCT USED FOR UNKNOWN INDICATION
     Dates: start: 20160902, end: 20160906
  64. LOVENOX [Concomitant]
     Active Substance: ENOXAPARIN SODIUM
     Dates: start: 20161014, end: 20161014
  65. PASPERTIN [Concomitant]
     Indication: NAUSEA
     Dates: start: 201610
  66. RITUXIMAB. [Suspect]
     Active Substance: RITUXIMAB
     Dosage: MOST RECENT DOSE PRIOR TO COMMON COLD, THIRD EPISODE OF FN (740MG) WAS 28NOV16
     Route: 042
  67. RITUXIMAB. [Suspect]
     Active Substance: RITUXIMAB
     Dosage: MOST RECENT DOSE PRIOR TO INFLUENZA INFECTION (740MG) WAS 20DEC16
     Route: 042

REACTIONS (5)
  - Influenza [Recovered/Resolved]
  - Infection [Recovered/Resolved]
  - Nasopharyngitis [Recovered/Resolved]
  - Syncope [Recovered/Resolved]
  - Febrile neutropenia [Recovered/Resolved]

NARRATIVE: CASE EVENT DATE: 20161020
